FAERS Safety Report 9748903 (Version 2)
Quarter: 2013Q4

REPORT INFORMATION
  Report Type: Spontaneous
  Country: US (occurrence: US)
  Receive Date: 20131212
  Receipt Date: 20131212
  Transmission Date: 20140711
  Serious: No
  Sender: FDA-Public Use
  Company Number: US-INCYTE CORPORATION-2013IN000321

PATIENT
  Sex: Male

DRUGS (11)
  1. JAKAFI [Suspect]
     Indication: MYELOFIBROSIS
     Dosage: 20 MG, BID
     Route: 048
     Dates: start: 20120419
  2. JAKAFI [Suspect]
     Dosage: 15 MG, BID
     Route: 048
  3. JAKAFI [Suspect]
     Dosage: 10 MG, BID
     Route: 048
  4. HYDREA [Concomitant]
     Dosage: 500 MG, BID TUESDAY AND THURSDAY ONLY
     Route: 048
  5. ZYLOPRIM [Concomitant]
     Dosage: 300 MG, QD
     Route: 048
  6. CADUET [Concomitant]
     Dosage: 5-20 MG QD
     Route: 048
  7. ASPIRIN [Concomitant]
     Dosage: 81 MG, QD
     Route: 048
  8. GLUCOPHAGE [Concomitant]
     Dosage: 1000 MG, BID
     Route: 048
  9. MULTIVITAMIN WITH MINERALS [Concomitant]
     Dosage: 1 DF, QD
     Route: 048
  10. PRILOSEC [Concomitant]
     Dosage: 20 MG, BID
     Route: 048
  11. PAXIL [Concomitant]
     Dosage: 20 MG, QD
     Route: 048

REACTIONS (3)
  - Pruritus [Not Recovered/Not Resolved]
  - Leukocytosis [Not Recovered/Not Resolved]
  - Blood count abnormal [Recovered/Resolved]
